FAERS Safety Report 8435496-1 (Version None)
Quarter: 2012Q2

REPORT INFORMATION
  Report Type: 
  Country: None (occurrence: None)
  Receive Date: 20120614
  Receipt Date: 20120605
  Transmission Date: 20120825
  Serious: Yes (Hospitalization)
  Sender: FDA-Public Use
  Company Number: US-BAYER-2012-042976

PATIENT
  Age: 44 Year
  Sex: Female
  Weight: 72.562 kg

DRUGS (14)
  1. TEGRETOL [Concomitant]
     Indication: DEPRESSION
     Dosage: 400 MG, UNK
     Dates: start: 20080101
  2. MULTI-VITAMIN [Concomitant]
     Route: 048
  3. TEGRETOL [Concomitant]
     Dosage: 100 MG B.I.D
  4. WELLBUTRIN XL [Concomitant]
     Dosage: 150 MG A.M (INTERPRETED AS MORNING). IN ADDITION TO 300 MG A.M.
  5. TESSALON [Concomitant]
  6. DROSPIRENONE AND ETHINYL ESTRADIOL [Suspect]
     Indication: HOT FLUSH
     Dosage: UNK
     Dates: start: 20100319, end: 20100409
  7. SYNTHROID [Concomitant]
     Dosage: 25 MCG DAILY
  8. ZOCOR [Concomitant]
     Indication: DYSLIPIDAEMIA
  9. SYNTHROID [Concomitant]
     Indication: HYPOTHYROIDISM
     Dosage: 75 MG, UNK
     Dates: start: 20050101
  10. KLOR-CON [Concomitant]
     Dosage: 20 MEQ, Q A.M
  11. TRAZODONE HCL [Concomitant]
     Dosage: 50 MG, UNK
     Route: 048
     Dates: start: 20100316
  12. WELLBUTRIN XL [Concomitant]
     Indication: DEPRESSION
     Dosage: 300 MG, UNK
     Dates: start: 20090101
  13. PERLES [Concomitant]
  14. LASIX [Concomitant]
     Indication: PLEURAL EFFUSION
     Dosage: 40 MG, Q A.M.

REACTIONS (7)
  - PLEURAL EFFUSION [None]
  - PULMONARY EMBOLISM [None]
  - PAIN [None]
  - INJURY [None]
  - FATIGUE [None]
  - CHEST PAIN [None]
  - DYSPNOEA [None]
